FAERS Safety Report 10204929 (Version 4)
Quarter: 2014Q3

REPORT INFORMATION
  Report Type: Report from Study
  Country: PE (occurrence: PE)
  Receive Date: 20140529
  Receipt Date: 20140822
  Transmission Date: 20150326
  Serious: Yes (Other)
  Sender: FDA-Public Use
  Company Number: PE-009507513-1405PER012107

PATIENT
  Age: 57 Year
  Sex: Female
  Weight: 78 kg

DRUGS (6)
  1. ATENOLOL. [Concomitant]
     Active Substance: ATENOLOL
     Dosage: TOTAL DAILY DOSE 50 (NOT UNITS PROVIDED)
     Route: 048
     Dates: start: 20130801
  2. SIMVASTATIN. [Suspect]
     Active Substance: SIMVASTATIN
     Indication: ACUTE CORONARY SYNDROME
     Dosage: 40 MG, QD
     Route: 048
     Dates: start: 20091116
  3. LOSARTAN POTASSIUM. [Concomitant]
     Active Substance: LOSARTAN POTASSIUM
     Dosage: TOTAL DAILY DOSE 50 MG
     Route: 048
     Dates: start: 20120322
  4. ASPIRIN. [Concomitant]
     Active Substance: ASPIRIN
     Dosage: TOTAL DAILY DOSE 100 MG
     Route: 048
     Dates: start: 20091113
  5. METFORMIN [Concomitant]
     Active Substance: METFORMIN HYDROCHLORIDE
     Dosage: TOTAL DAILY DOSE 850 MG
     Route: 048
     Dates: start: 19910110
  6. GLIBENCLAMID [Concomitant]
     Active Substance: GLYBURIDE
     Dosage: TOTAL DAILY DOSE 5 MG
     Route: 048
     Dates: start: 19910110

REACTIONS (1)
  - Carcinoma in situ [Recovered/Resolved]

NARRATIVE: CASE EVENT DATE: 20140327
